FAERS Safety Report 22171520 (Version 1)
Quarter: 2023Q2

REPORT INFORMATION
  Report Type: Spontaneous
  Country: US (occurrence: None)
  Receive Date: 20230403
  Receipt Date: 20230403
  Transmission Date: 20230721
  Serious: No
  Sender: FDA-Public Use
  Company Number: None

PATIENT
  Age: 71 Year
  Sex: Female
  Weight: 59.42 kg

DRUGS (24)
  1. SUNITINIB MALATE [Suspect]
     Active Substance: SUNITINIB MALATE
     Indication: Gastrointestinal stromal tumour
     Dosage: FREQUENCY : DAILY;?
     Route: 048
     Dates: start: 202302
  2. ALPRAZOLAM [Concomitant]
  3. ALBUTEROL [Concomitant]
  4. ANALPRAM HC [Concomitant]
  5. BACLOFEN [Concomitant]
  6. BENTYL [Concomitant]
     Active Substance: DICYCLOMINE HYDROCHLORIDE
  7. CARAFATE [Concomitant]
  8. DICLOFENAC [Concomitant]
  9. FLEET (BISACODYL) [Concomitant]
     Active Substance: BISACODYL
  10. GABAPENTIN [Concomitant]
  11. LASIX [Concomitant]
  12. MS CONTIN [Concomitant]
  13. MEGACE ES [Concomitant]
  14. NEXIUM [Concomitant]
  15. NORCO [Concomitant]
  16. PEPCID [Concomitant]
  17. PLAVIX [Concomitant]
  18. PROCTOFOAM [Concomitant]
  19. STALEVO [Concomitant]
  20. STOOL SOFTENER [Concomitant]
  21. SUPREP BOWEL PREP KIT [Concomitant]
  22. TRAZODONE [Concomitant]
  23. XOPENEX [Concomitant]
  24. ZOFRAN [Concomitant]

REACTIONS (1)
  - SARS-CoV-2 test positive [None]

NARRATIVE: CASE EVENT DATE: 20230331
